FAERS Safety Report 10337739 (Version 2)
Quarter: 2014Q3

REPORT INFORMATION
  Report Type: Spontaneous
  Country: US (occurrence: US)
  Receive Date: 20140724
  Receipt Date: 20140724
  Transmission Date: 20150326
  Serious: No
  Sender: FDA-Public Use
  Company Number: US-UNITED THERAPEUTICS-UTC-045369

PATIENT
  Sex: Female
  Weight: 41.73 kg

DRUGS (3)
  1. LETAIRIS [Suspect]
     Active Substance: AMBRISENTAN
     Route: 048
     Dates: start: 201305
  2. TYVASO [Suspect]
     Active Substance: TREPROSTINIL
     Dosage: 18-54 MICROGRAMS
     Dates: start: 20140217
  3. LETAIRIS [Suspect]
     Active Substance: AMBRISENTAN

REACTIONS (6)
  - Chest discomfort [Recovered/Resolved]
  - Heart rate decreased [Unknown]
  - Headache [Not Recovered/Not Resolved]
  - Throat irritation [Unknown]
  - Dizziness [Not Recovered/Not Resolved]
  - Hypotension [Unknown]

NARRATIVE: CASE EVENT DATE: 2014
